FAERS Safety Report 16353956 (Version 1)
Quarter: 2019Q2

REPORT INFORMATION
  Report Type: Spontaneous
  Country: NL (occurrence: NL)
  Receive Date: 20190524
  Receipt Date: 20190524
  Transmission Date: 20190711
  Serious: Yes (Other)
  Sender: FDA-Public Use
  Company Number: PHHY2019NL115984

PATIENT
  Sex: Female

DRUGS (3)
  1. TRAVOPROST. [Suspect]
     Active Substance: TRAVOPROST
     Indication: FOETAL EXPOSURE DURING PREGNANCY
     Route: 064
  2. URSODEOXYCHOLIC ACID [Suspect]
     Active Substance: URSODIOL
     Indication: FOETAL EXPOSURE DURING PREGNANCY
     Dosage: 25 MG, BID
     Route: 065
  3. TIMOLOL. [Suspect]
     Active Substance: TIMOLOL
     Indication: FOETAL EXPOSURE DURING PREGNANCY
     Route: 064

REACTIONS (6)
  - Anaemia [Unknown]
  - Hyperbilirubinaemia [Unknown]
  - Jaundice [Unknown]
  - Reticulocytosis [Unknown]
  - Hepatomegaly [Unknown]
  - Foetal exposure during pregnancy [Unknown]
